FAERS Safety Report 5346868-6 (Version None)
Quarter: 2007Q2

REPORT INFORMATION
  Report Type: 
  Country: None (occurrence: None)
  Receive Date: 20070604
  Receipt Date: 20070522
  Transmission Date: 20071010
  Serious: Yes (Hospitalization)
  Sender: FDA-Public Use
  Company Number: 2007-01366

PATIENT
  Age: 58 Year
  Sex: Male

DRUGS (4)
  1. VELCADE [Suspect]
     Indication: PLASMACYTOMA
     Dosage: SEE IMAGE
     Route: 042
     Dates: start: 20070425
  2. DEXAMETHASONE 0.5MG TAB [Suspect]
     Indication: DRUG USE FOR UNKNOWN INDICATION
     Dosage: 40.00 MG, UNK, INTRAVENOUS
     Route: 042
     Dates: start: 20070425
  3. ALLOPURINOL [Concomitant]
  4. TAVANIC               (LEVOFLOXACIN) [Concomitant]

REACTIONS (4)
  - BLOOD ALKALINE PHOSPHATASE INCREASED [None]
  - BLOOD LACTATE DEHYDROGENASE INCREASED [None]
  - C-REACTIVE PROTEIN INCREASED [None]
  - GAMMA-GLUTAMYLTRANSFERASE INCREASED [None]
